FAERS Safety Report 7601383-1 (Version None)
Quarter: 2011Q2

REPORT INFORMATION
  Report Type: 
  Country: None (occurrence: None)
  Receive Date: 20110629
  Receipt Date: 20110405
  Transmission Date: 20111010
  Serious: Yes (Hospitalization)
  Sender: FDA-Public Use
  Company Number: WAES 1104USA00573

PATIENT
  Age: 48 Year
  Sex: Male

DRUGS (2)
  1. HYZAAR [Suspect]
     Indication: HYPERTENSION
     Dosage: 100-25 MG/PO
     Route: 048
     Dates: start: 20110325, end: 20110405
  2. AZITHROMYCIN [Concomitant]

REACTIONS (3)
  - MYALGIA [None]
  - RASH [None]
  - PYREXIA [None]
